FAERS Safety Report 6914562-3 (Version None)
Quarter: 2010Q3

REPORT INFORMATION
  Report Type: 
  Country: None (occurrence: None)
  Receive Date: 20100809
  Receipt Date: 20100728
  Transmission Date: 20110219
  Serious: Yes (Hospitalization)
  Sender: FDA-Public Use
  Company Number: US-PFIZER INC-2008150297

PATIENT
  Sex: Male
  Weight: 78 kg

DRUGS (19)
  1. BLINDED *NO SUBJECT DRUG [Suspect]
     Indication: CARDIAC FAILURE
     Dosage: UNK
     Route: 048
     Dates: start: 20081111, end: 20081126
  2. BLINDED *PLACEBO [Suspect]
     Indication: CARDIAC FAILURE
     Dosage: UNK
     Route: 048
     Dates: start: 20081111, end: 20081126
  3. EPLERENONE [Suspect]
     Indication: CARDIAC FAILURE
     Dosage: UNK
     Route: 048
     Dates: start: 20081111, end: 20081126
  4. ALLOPURINOL [Concomitant]
     Dosage: 100 MG, 1X/DAY
     Route: 048
     Dates: start: 20030717, end: 20081220
  5. COREG [Concomitant]
     Dosage: 25 MG, 2X/DAY
     Route: 048
     Dates: start: 20030717, end: 20081220
  6. ACETYLSALICYLIC ACID [Concomitant]
     Dosage: 81 MG, 1X/DAY
     Route: 048
     Dates: start: 20030717, end: 20081220
  7. ARICEPT [Concomitant]
     Dosage: 10 MG, 1X/DAY
     Route: 048
     Dates: start: 20081108, end: 20081220
  8. VITAMIN B-12 [Concomitant]
     Dosage: 2000 MG, MONTHLY
     Route: 030
     Dates: end: 20081220
  9. PLAVIX [Concomitant]
     Dosage: 75 MG, 1X/DAY
     Route: 048
     Dates: start: 20081109, end: 20081220
  10. PRESERVISION SOFTGELS WITH LUTEIN [Concomitant]
     Dosage: 1 TABLET, 1X/DAY
     Route: 048
     Dates: end: 20081220
  11. POTASSIUM CHLORIDE [Concomitant]
     Dosage: 10 MEQ, 1X/DAY
     Route: 048
     Dates: start: 20081111, end: 20081220
  12. FUROSEMIDE [Concomitant]
     Dosage: 40 MG, UNK
     Route: 048
     Dates: start: 20081201, end: 20081220
  13. LEVAQUIN [Concomitant]
     Dosage: 250 MG, 1X/DAY
     Route: 042
     Dates: start: 20081127, end: 20081202
  14. K-DUR [Concomitant]
     Dosage: 20 MEQ, 1X/DAY
     Route: 048
     Dates: start: 20081126
  15. ZYPREXA [Concomitant]
     Dosage: 2.5 MG, 1X/DAY
     Route: 048
     Dates: start: 20081128
  16. OXYCODONE [Concomitant]
     Dosage: 5 MG, AS NEEDED
     Route: 048
     Dates: start: 20081130
  17. INSULIN [Concomitant]
     Dosage: UNK
     Dates: start: 20081202
  18. SODIUM CHLORIDE [Concomitant]
     Dosage: UNK
     Route: 042
     Dates: start: 20081126, end: 20081202
  19. LASIX [Concomitant]
     Dosage: 10 MG, 1X/DAY
     Dates: start: 20081121, end: 20081127

REACTIONS (2)
  - CARDIAC FAILURE CONGESTIVE [None]
  - RENAL FAILURE [None]
